FAERS Safety Report 6528812-9 (Version None)
Quarter: 2010Q1

REPORT INFORMATION
  Report Type: 
  Country: None (occurrence: None)
  Receive Date: 20100106
  Receipt Date: 20091229
  Transmission Date: 20100710
  Serious: Yes (Other)
  Sender: FDA-Public Use
  Company Number: FR-ELI_LILLY_AND_COMPANY-FR200910007094

PATIENT
  Age: 53 Year
  Sex: Male
  Weight: 94 kg

DRUGS (5)
  1. HUMALOG [Suspect]
     Indication: TYPE 1 DIABETES MELLITUS
     Dosage: 12 IU, EACH MORNING
     Route: 058
  2. HUMALOG [Suspect]
     Dosage: 13 IU, MIDDAY
     Route: 058
  3. HUMALOG [Suspect]
     Dosage: 17 IU, EACH EVENING
     Route: 058
  4. LANTUS [Concomitant]
     Indication: TYPE 1 DIABETES MELLITUS
     Dosage: 17 IU, EACH EVENING
     Route: 058
  5. METFORMIN HCL [Concomitant]
     Dosage: 1000 MG, 3/D
     Route: 048

REACTIONS (1)
  - HYPERGLYCAEMIA [None]
